FAERS Safety Report 9445524 (Version 1)
Quarter: 2013Q3

REPORT INFORMATION
  Report Type: Spontaneous
  Country: US (occurrence: US)
  Receive Date: 20130807
  Receipt Date: 20130807
  Transmission Date: 20140515
  Serious: Yes (Death, Hospitalization)
  Sender: FDA-Public Use
  Company Number: US-BAYER-2013-092963

PATIENT
  Age: 74 Year
  Sex: Male
  Weight: 71 kg

DRUGS (8)
  1. BAYER ASPIRIN REGIMEN ADULT LOW STRENGTH [Suspect]
     Indication: ANGINA PECTORIS
     Dosage: 81 MG, UNK
     Dates: start: 20100831
  2. METOPROLOL TARTRATE [Suspect]
     Indication: CARDIOVASCULAR EVENT PROPHYLAXIS
     Dosage: 25 MG, BID
     Dates: start: 20100902
  3. PLAVIX [Interacting]
     Indication: CARDIOVASCULAR EVENT PROPHYLAXIS
     Dosage: 25 MG, UNK
     Dates: start: 20100902
  4. LOVASTATIN [Concomitant]
     Indication: HYPERLIPIDAEMIA
     Dosage: UNK
     Dates: start: 2008
  5. FLORINEF [Concomitant]
     Indication: HYPOTENSION
     Dosage: UNK
     Dates: start: 2008
  6. VESICARE [Concomitant]
     Indication: INCONTINENCE
     Dosage: UNK
     Dates: start: 20100518
  7. ARICEPT [Concomitant]
     Indication: DEMENTIA ALZHEIMER^S TYPE
     Dosage: UNK
     Dates: start: 2006
  8. NAMENDA [Concomitant]
     Indication: DEMENTIA ALZHEIMER^S TYPE
     Dosage: UNK
     Dates: start: 2008

REACTIONS (6)
  - Subarachnoid haemorrhage [Fatal]
  - Unresponsive to stimuli [Fatal]
  - Coma [Fatal]
  - Brain oedema [Fatal]
  - Tension headache [None]
  - Labelled drug-drug interaction medication error [None]
